FAERS Safety Report 9572260 (Version 1)
Quarter: 2013Q3

REPORT INFORMATION
  Report Type: Spontaneous
  Country: IN (occurrence: None)
  Receive Date: 20130927
  Receipt Date: 20130927
  Transmission Date: 20140515
  Serious: Yes (Hospitalization)
  Sender: FDA-Public Use
  Company Number: SYM-2013-10982

PATIENT
  Age: 40 Year
  Sex: Male

DRUGS (3)
  1. FLUOROURACIL (FLUOROURACIL) (FLUOROURACIL) [Suspect]
     Indication: GASTRIC CANCER
  2. DOXORUBICIN ( DOXORUBICIN) ( DOXORUBICIN) [Concomitant]
  3. CYCLOPHOSPHAMIDE ( CYCLOPHOSPHAMIDE) ( CYCLOPHOSPHAMIDE) [Concomitant]

REACTIONS (1)
  - Myocardial infarction [None]
